FAERS Safety Report 4718156-X (Version None)
Quarter: 2005Q3

REPORT INFORMATION
  Report Type: 
  Country: None (occurrence: None)
  Receive Date: 20050718
  Receipt Date: 20050718
  Transmission Date: 20060218
  Serious: Yes (Hospitalization)
  Sender: FDA-Public Use
  Company Number: None

PATIENT
  Age: 57 Year
  Sex: Male

DRUGS (27)
  1. TERAZOSIN [Suspect]
     Indication: BENIGN PROSTATIC HYPERPLASIA
     Dosage: 2 MG PO QHS
     Route: 048
     Dates: start: 20041216, end: 20050418
  2. GABAPENTIN [Suspect]
     Indication: TRIGEMINAL NEURALGIA
     Dosage: 600 MG PO TID
     Route: 048
     Dates: start: 20040226, end: 20050418
  3. TERAZOSIN HCL [Concomitant]
  4. OMEPRAZOLE [Concomitant]
  5. ALBUTEROL [Concomitant]
  6. METOPROLOL TARTRATE [Concomitant]
  7. PHENAZOPYRIDINE HCL TAB [Concomitant]
  8. CLOPIDOGREL BISULFATE [Concomitant]
  9. FLUNISOLIDE NASAL SPRAY [Concomitant]
  10. GUAIFENESIN [Concomitant]
  11. ASPIRIN [Concomitant]
  12. TIOTROPIUM BROMIDE INH [Concomitant]
  13. GABAPENTIN [Concomitant]
  14. IRBESARTAN [Concomitant]
  15. ISOSORBIDE DINITRATE [Concomitant]
  16. DIPHENHYDRAMINE HCL [Concomitant]
  17. METOCLOPRAMIDE HCL [Concomitant]
  18. SIMVASTATIN [Concomitant]
  19. ADVAIR DISKUS 100/50 [Concomitant]
  20. CARBAMAZEPINE [Concomitant]
  21. OYST CAL D [Concomitant]
  22. SIMETHICONE [Concomitant]
  23. NITROGLYCERIN [Concomitant]
  24. ACETAMINOPHEN [Concomitant]
  25. ALBUTEROL SO4 INH [Concomitant]
  26. LOPERAMIDE HCL [Concomitant]
  27. CIPROFLOXACIN 0.3% OPTH DROPS [Concomitant]

REACTIONS (2)
  - BLOOD CREATINE INCREASED [None]
  - HYPERKALAEMIA [None]
